FAERS Safety Report 12395723 (Version 3)
Quarter: 2016Q3

REPORT INFORMATION
  Report Type: Spontaneous
  Country: US (occurrence: US)
  Receive Date: 20160523
  Receipt Date: 20160907
  Transmission Date: 20161109
  Serious: No
  Sender: FDA-Public Use
  Company Number: US-ACTELION-A-US2016-136322

PATIENT
  Age: 23 Year
  Sex: Female

DRUGS (3)
  1. TRACLEER [Suspect]
     Active Substance: BOSENTAN
     Indication: PULMONARY ARTERIAL HYPERTENSION
     Dosage: UNK
     Route: 048
  2. SILDENAFIL. [Concomitant]
     Active Substance: SILDENAFIL
  3. VELETRI [Suspect]
     Active Substance: EPOPROSTENOL
     Indication: PULMONARY ARTERIAL HYPERTENSION
     Dosage: 5 NG/KG, PER MIN
     Route: 042
     Dates: start: 20160105

REACTIONS (12)
  - Nausea [Unknown]
  - Device malfunction [Unknown]
  - Catheter placement [Unknown]
  - Haematemesis [Unknown]
  - Back pain [Unknown]
  - Catheter site pruritus [Unknown]
  - Chest pain [Unknown]
  - Dyspnoea exertional [Unknown]
  - Catheter site erythema [Unknown]
  - Device dislocation [Unknown]
  - Application site pain [Unknown]
  - Headache [Unknown]
